FAERS Safety Report 21525420 (Version 5)
Quarter: 2022Q4

REPORT INFORMATION
  Report Type: Spontaneous
  Country: US (occurrence: US)
  Receive Date: 20221030
  Receipt Date: 20221221
  Transmission Date: 20230113
  Serious: No
  Sender: FDA-Public Use
  Company Number: US-AMGEN-USASP2022185696

PATIENT
  Age: 68 Year
  Sex: Female

DRUGS (1)
  1. ENBREL [Suspect]
     Active Substance: ETANERCEPT
     Indication: Arthritis
     Dosage: 50 MILLIGRAM, QWK
     Route: 058
     Dates: start: 202112

REACTIONS (8)
  - Product storage error [Unknown]
  - Circumstance or information capable of leading to medication error [Unknown]
  - Cough [Unknown]
  - Dysphonia [Unknown]
  - Injection site pain [Unknown]
  - Device difficult to use [Unknown]
  - Drug dose omission by device [Unknown]
  - Dry throat [Unknown]

NARRATIVE: CASE EVENT DATE: 20221025
